FAERS Safety Report 13447392 (Version 1)
Quarter: 2017Q2

REPORT INFORMATION
  Report Type: Spontaneous
  Country: US (occurrence: US)
  Receive Date: 20170416
  Receipt Date: 20170416
  Transmission Date: 20170830
  Serious: Yes (Other)
  Sender: FDA-Public Use
  Company Number: None

PATIENT
  Age: 64 Year
  Sex: Male
  Weight: 130.5 kg

DRUGS (19)
  1. ATORVASTATIN [Concomitant]
     Active Substance: ATORVASTATIN
  2. VITAMIN D3 [Concomitant]
     Active Substance: CHOLECALCIFEROL
  3. MULTIPLE DAILY VITAMIN [Concomitant]
  4. MELOXICAM. [Concomitant]
     Active Substance: MELOXICAM
  5. ALFUZOSIN [Concomitant]
     Active Substance: ALFUZOSIN
  6. LEVEMIR [Suspect]
     Active Substance: INSULIN DETEMIR
  7. LANTUS SOLOSTAR [Suspect]
     Active Substance: INSULIN GLARGINE
  8. GLIMEPIRIDE. [Concomitant]
     Active Substance: GLIMEPIRIDE
  9. FLUTICASONE. [Concomitant]
     Active Substance: FLUTICASONE
  10. ASPIRIN. [Concomitant]
     Active Substance: ASPIRIN
  11. HYAL-JOINT HYALURONIC ACID [Concomitant]
  12. ACTIFRUIT CRANBERRY CHEW [Concomitant]
  13. TRESIBA [Suspect]
     Active Substance: INSULIN DEGLUDEC
     Indication: TYPE 2 DIABETES MELLITUS
  14. VALSARTAN. [Concomitant]
     Active Substance: VALSARTAN
  15. GLUCOSAMINE CHONDROITIN MSM [Concomitant]
  16. VITAMIN C WITH ROSE HIPS [Concomitant]
  17. FINASTERIDE. [Concomitant]
     Active Substance: FINASTERIDE
  18. METFORMIN [Concomitant]
     Active Substance: METFORMIN HYDROCHLORIDE
  19. TRULICITY [Concomitant]
     Active Substance: DULAGLUTIDE

REACTIONS (8)
  - Swollen tongue [None]
  - Local swelling [None]
  - Pharyngeal oedema [None]
  - Lymphadenopathy [None]
  - Dysphagia [None]
  - Dyspnoea [None]
  - Choking [None]
  - Initial insomnia [None]

NARRATIVE: CASE EVENT DATE: 20160601
